FAERS Safety Report 11074365 (Version 1)
Quarter: 2015Q2

REPORT INFORMATION
  Report Type: Spontaneous
  Country: DE (occurrence: DE)
  Receive Date: 20150428
  Receipt Date: 20150428
  Transmission Date: 20150821
  Serious: Yes (Hospitalization)
  Sender: FDA-Public Use
  Company Number: DE-BAUSCH-BL-2015-011594

PATIENT
  Age: 31 Year
  Sex: Male

DRUGS (1)
  1. DIAZEPAM. [Suspect]
     Active Substance: DIAZEPAM
     Indication: PRODUCT USED FOR UNKNOWN INDICATION
     Route: 013

REACTIONS (5)
  - Incorrect route of drug administration [Recovered/Resolved]
  - Sympathomimetic effect [Recovered/Resolved]
  - Peripheral ischaemia [Recovered/Resolved]
  - Deep vein thrombosis [Recovered/Resolved]
  - Agitation [Recovered/Resolved]
